FAERS Safety Report 8613832-0 (Version None)
Quarter: 2012Q3

REPORT INFORMATION
  Report Type: 
  Country: None (occurrence: None)
  Receive Date: 20120823
  Receipt Date: 20120817
  Transmission Date: 20120928
  Serious: No
  Sender: FDA-Public Use
  Company Number: US-BIOGENIDEC-2012BI032414

PATIENT
  Sex: Female

DRUGS (2)
  1. AVONEX [Suspect]
     Indication: MULTIPLE SCLEROSIS
     Route: 030
     Dates: start: 20051213, end: 20070103
  2. AVONEX [Suspect]
     Route: 030
     Dates: start: 20071016

REACTIONS (2)
  - OEDEMA PERIPHERAL [None]
  - STRESS [None]
